FAERS Safety Report 18347320 (Version 21)
Quarter: 2021Q1

REPORT INFORMATION
  Report Type: Report from Study
  Country: CN (occurrence: CN)
  Receive Date: 20201005
  Receipt Date: 20210318
  Transmission Date: 20210419
  Serious: Yes (Hospitalization)
  Sender: FDA-Public Use
  Company Number: CN-ROCHE-2687402

PATIENT
  Age: 62 Year
  Sex: Female
  Weight: 64.1 kg

DRUGS (72)
  1. POTASSIUM CHLORIDE. [Concomitant]
     Active Substance: POTASSIUM CHLORIDE
     Indication: PROPHYLAXIS
     Dates: start: 20201019, end: 20201019
  2. POTASSIUM CHLORIDE. [Concomitant]
     Active Substance: POTASSIUM CHLORIDE
     Dates: start: 20200713, end: 20200714
  3. SODIUM BICARBONATE. [Concomitant]
     Active Substance: SODIUM BICARBONATE
     Dates: start: 20200716, end: 20200723
  4. PREDNISONE ACETATE [Concomitant]
     Active Substance: PREDNISONE ACETATE
     Indication: PROPHYLAXIS
     Route: 048
     Dates: start: 20200909, end: 20200909
  5. OMEPRAZOLE SODIUM [Concomitant]
     Active Substance: OMEPRAZOLE SODIUM
     Route: 042
     Dates: start: 20201010, end: 20201010
  6. IBUPROFEN SUSTAINED RELEASE [Concomitant]
     Indication: PYREXIA
     Dates: start: 20201009, end: 20201009
  7. IBUPROFEN SUSTAINED RELEASE [Concomitant]
     Dates: start: 20200712, end: 20200712
  8. IBUPROFEN SUSTAINED RELEASE [Concomitant]
     Dates: start: 20200714, end: 20200715
  9. LYSINE ACETYLSALICYLATE [Concomitant]
     Active Substance: ASPIRIN DL-LYSINE
     Dates: start: 20200713, end: 20200713
  10. CONCENTRATED SODIUM CHLORIDE [Concomitant]
     Active Substance: SODIUM CHLORIDE
     Indication: PRODUCTIVE COUGH
     Dates: start: 20200716, end: 20200716
  11. POTASSIUM CITRATE. [Concomitant]
     Active Substance: POTASSIUM CITRATE
     Indication: HYPOKALAEMIA
     Dates: start: 20201030, end: 20201030
  12. XYZAL [Concomitant]
     Active Substance: LEVOCETIRIZINE DIHYDROCHLORIDE
     Indication: RASH
     Dates: start: 20200820, end: 20200901
  13. CALAMINE LOTION [Concomitant]
     Active Substance: CALAMINE LOTION
     Dates: start: 20200902
  14. SODIUM BICARBONATE. [Concomitant]
     Active Substance: SODIUM BICARBONATE
     Dates: start: 20200709, end: 20200713
  15. LORATADINE. [Concomitant]
     Active Substance: LORATADINE
     Indication: PRURITUS
     Dates: start: 20201010, end: 20201010
  16. DIPHENHYDRAMINE HYDROCHLORIDE. [Concomitant]
     Active Substance: DIPHENHYDRAMINE HYDROCHLORIDE
     Dates: start: 20201010, end: 20201010
  17. DIPHENHYDRAMINE HYDROCHLORIDE. [Concomitant]
     Active Substance: DIPHENHYDRAMINE HYDROCHLORIDE
     Dates: start: 20201009, end: 20201009
  18. LIDOCAINE HYDROCHLORIDE. [Concomitant]
     Active Substance: LIDOCAINE HYDROCHLORIDE
     Dates: start: 20200723, end: 20200723
  19. PREDNISONE ACETATE [Concomitant]
     Active Substance: PREDNISONE ACETATE
     Route: 048
     Dates: start: 20200711, end: 20200712
  20. SOLU?MEDROL [Concomitant]
     Active Substance: METHYLPREDNISOLONE SODIUM SUCCINATE
     Indication: PROPHYLAXIS
     Dates: start: 20200926, end: 20201006
  21. GANCICLOVIR. [Concomitant]
     Active Substance: GANCICLOVIR
     Dates: start: 20200711
  22. ALLOPURINOL. [Concomitant]
     Active Substance: ALLOPURINOL
     Dates: start: 20200716, end: 20200723
  23. HIRUDOID [Concomitant]
     Active Substance: GLYCOSAMINOGLYCANS
     Indication: PROPHYLAXIS
     Dates: start: 20200709, end: 20200709
  24. CALCIUM GLUCONATE. [Concomitant]
     Active Substance: CALCIUM GLUCONATE
     Dates: start: 20200714, end: 20200714
  25. PANANGIN [Concomitant]
     Active Substance: MAGNESIUM ASPARTATE\POTASSIUM ASPARTATE
     Indication: PROPHYLAXIS
     Dates: start: 20200714, end: 20200714
  26. SPIRONOLACTONE. [Concomitant]
     Active Substance: SPIRONOLACTONE
     Indication: POLYURIA
     Dates: start: 20200717, end: 20200717
  27. RITUXIMAB. [Suspect]
     Active Substance: RITUXIMAB
     Indication: DIFFUSE LARGE B-CELL LYMPHOMA
     Dosage: MOST RECENT DOSE PRIOR TO LUNG INFECTION FIRST EPISODE: 11/JUL/2020?MOST RECENT DOSE PRIOR TO INTERS
     Route: 042
     Dates: start: 20200711
  28. PEGYLATED RECOMBINANT HUMAN GRANULOCYTE COLONY STIMULATING FACTOR [Concomitant]
     Indication: LEUKOPENIA
  29. POTASSIUM CHLORIDE. [Concomitant]
     Active Substance: POTASSIUM CHLORIDE
     Dates: start: 20200709, end: 20200713
  30. LORATADINE. [Concomitant]
     Active Substance: LORATADINE
     Indication: RASH
     Dates: start: 20200910, end: 20200911
  31. DEXAMETHASONE SODIUM PHOSPHATE. [Concomitant]
     Active Substance: DEXAMETHASONE SODIUM PHOSPHATE
     Indication: PRURITUS
     Route: 042
     Dates: start: 20201010, end: 20201010
  32. ALLOPURINOL. [Concomitant]
     Active Substance: ALLOPURINOL
     Dates: start: 20200709, end: 20200709
  33. SULFAMETHOXAZOLE [Concomitant]
     Active Substance: SULFAMETHOXAZOLE
     Dates: start: 20200711, end: 20200726
  34. COMPOUND CHLORHEXIDINE GARGLE [Concomitant]
     Dates: start: 20200716, end: 20200716
  35. POLATUZUMAB VEDOTIN. [Suspect]
     Active Substance: POLATUZUMAB VEDOTIN
     Indication: DIFFUSE LARGE B-CELL LYMPHOMA
     Dosage: MOST RECENT DOSE PRIOR TO LUNG INFECTION FIRST EPISODE: 12/JUL/2020. MOST RECENT DOSE PRIOR TO LUNG
     Route: 042
     Dates: start: 20200712
  36. POTASSIUM CHLORIDE. [Concomitant]
     Active Substance: POTASSIUM CHLORIDE
     Dates: start: 20200802, end: 20200803
  37. LIDOCAINE HYDROCHLORIDE. [Concomitant]
     Active Substance: LIDOCAINE HYDROCHLORIDE
     Indication: PROPHYLAXIS
     Dates: start: 20200910, end: 20200910
  38. METOCLOPRAMIDE DIHYDROCHLORIDE [Concomitant]
     Indication: PROPHYLAXIS OF NAUSEA AND VOMITING
     Dates: start: 20200715, end: 20200715
  39. METOPROLOL TARTRATE. [Concomitant]
     Active Substance: METOPROLOL TARTRATE
     Dates: start: 20200715, end: 20200715
  40. SODIUM BICARBONATE. [Concomitant]
     Active Substance: SODIUM BICARBONATE
     Indication: PROPHYLAXIS
     Dates: start: 20200909, end: 20200911
  41. TROPISETRON HYDROCHLORIDE [Concomitant]
     Active Substance: TROPISETRON HYDROCHLORIDE
     Indication: PROPHYLAXIS
     Dates: start: 20200909, end: 20200909
  42. TROPISETRON HYDROCHLORIDE [Concomitant]
     Active Substance: TROPISETRON HYDROCHLORIDE
     Dates: start: 20200910, end: 20200911
  43. TROPISETRON HYDROCHLORIDE [Concomitant]
     Active Substance: TROPISETRON HYDROCHLORIDE
     Dates: start: 20201009, end: 20201009
  44. IBUPROFEN SUSTAINED RELEASE [Concomitant]
     Dates: start: 20200731, end: 20200731
  45. AVELOX [Concomitant]
     Active Substance: MOXIFLOXACIN HYDROCHLORIDE
     Dates: start: 20200713, end: 20200713
  46. GENTAMYCIN SULFATE [Concomitant]
     Active Substance: GENTAMICIN SULFATE
     Indication: STOMATITIS
     Dates: start: 20200723, end: 20200723
  47. RIVAROXABAN [Concomitant]
     Active Substance: RIVAROXABAN
     Indication: VENOUS THROMBOSIS
     Dates: start: 20201104, end: 20201104
  48. TROPISETRON HYDROCHLORIDE [Concomitant]
     Active Substance: TROPISETRON HYDROCHLORIDE
     Dates: start: 20200712, end: 20200713
  49. LORATADINE. [Concomitant]
     Active Substance: LORATADINE
     Dates: start: 20200810, end: 20200813
  50. ALLOPURINOL. [Concomitant]
     Active Substance: ALLOPURINOL
     Indication: PROPHYLAXIS
     Dates: start: 20200711, end: 20200715
  51. CYTARABINE. [Concomitant]
     Active Substance: CYTARABINE
     Indication: PROPHYLAXIS
     Dates: start: 20200731, end: 20200731
  52. FUROSEMIDE. [Concomitant]
     Active Substance: FUROSEMIDE
     Indication: POLYURIA
     Dates: start: 20200709, end: 20200714
  53. FUROSEMIDE. [Concomitant]
     Active Substance: FUROSEMIDE
     Dates: start: 20201023, end: 20201023
  54. COMPOUND METHOXYPHENAMINE [Concomitant]
     Dosage: USED TO TREAT ASTHMA
     Dates: start: 20200718, end: 20200723
  55. NYSFUNGIN [Concomitant]
     Indication: STOMATITIS
     Dates: start: 20200723, end: 20200723
  56. ETAMSYLATE [Concomitant]
     Active Substance: ETHAMSYLATE
     Dosage: PREVENT BLEEDING
     Dates: start: 20200718, end: 20200719
  57. BENDAMUSTINE [Suspect]
     Active Substance: BENDAMUSTINE
     Indication: DIFFUSE LARGE B-CELL LYMPHOMA
     Dosage: MOST RECENT DOSE PRIOR TO LUNG INFECTION FIRST EPISODE: 13/JUL/2020?MOST RECENT DOSE PRIOR TO INTERS
     Route: 042
     Dates: start: 20200712
  58. POTASSIUM CHLORIDE. [Concomitant]
     Active Substance: POTASSIUM CHLORIDE
     Indication: HYPOKALAEMIA
     Dates: start: 20200909, end: 20200911
  59. LORATADINE. [Concomitant]
     Active Substance: LORATADINE
     Dates: start: 20200727, end: 20200729
  60. DIPHENHYDRAMINE HYDROCHLORIDE. [Concomitant]
     Active Substance: DIPHENHYDRAMINE HYDROCHLORIDE
     Indication: PROPHYLAXIS
     Dates: start: 20200909, end: 20200909
  61. DIPHENHYDRAMINE HYDROCHLORIDE. [Concomitant]
     Active Substance: DIPHENHYDRAMINE HYDROCHLORIDE
     Dates: start: 20200711, end: 20200712
  62. DEXAMETHASONE SODIUM PHOSPHATE. [Concomitant]
     Active Substance: DEXAMETHASONE SODIUM PHOSPHATE
     Indication: PROPHYLAXIS
     Route: 050
     Dates: start: 20200731, end: 20200731
  63. PREDNISONE ACETATE [Concomitant]
     Active Substance: PREDNISONE ACETATE
     Indication: PROPHYLAXIS
     Route: 048
     Dates: start: 20201009, end: 20201009
  64. GLYCEROL [Concomitant]
     Active Substance: GLYCERIN
     Indication: CONSTIPATION
     Dates: start: 20200801, end: 20200802
  65. METHYLPREDNISOLONE SODIUM SUCCINATE. [Concomitant]
     Active Substance: METHYLPREDNISOLONE SODIUM SUCCINATE
     Indication: ANTIINFLAMMATORY THERAPY
     Route: 042
     Dates: start: 20200929, end: 20201001
  66. POTASSIUM CHLORIDE. [Concomitant]
     Active Substance: POTASSIUM CHLORIDE
     Dates: start: 20201003, end: 20201004
  67. LIDOCAINE HYDROCHLORIDE. [Concomitant]
     Active Substance: LIDOCAINE HYDROCHLORIDE
     Indication: STOMATITIS
     Dates: start: 20200703, end: 20200703
  68. PREDNISONE ACETATE [Concomitant]
     Active Substance: PREDNISONE ACETATE
     Route: 048
     Dates: start: 20200730, end: 20200730
  69. OMEPRAZOLE SODIUM [Concomitant]
     Active Substance: OMEPRAZOLE SODIUM
     Indication: PROPHYLAXIS
     Route: 042
     Dates: start: 20200929, end: 20201006
  70. IBUPROFEN SUSTAINED RELEASE [Concomitant]
     Dates: start: 20200711, end: 20200712
  71. BICYCLOL [Concomitant]
     Active Substance: BICYCLOL
     Dates: start: 20200716, end: 20200723
  72. LANSOPRAZOLE. [Concomitant]
     Active Substance: LANSOPRAZOLE
     Indication: PROPHYLAXIS
     Dates: start: 20201020, end: 20201104

REACTIONS (2)
  - Pneumonia [Recovered/Resolved]
  - Interstitial lung disease [Not Recovered/Not Resolved]

NARRATIVE: CASE EVENT DATE: 20200713
